FAERS Safety Report 12900997 (Version 1)
Quarter: 2016Q4

REPORT INFORMATION
  Report Type: Report from Study
  Country: None (occurrence: CH)
  Receive Date: 20161101
  Receipt Date: 20161101
  Transmission Date: 20170207
  Serious: Yes (Hospitalization, Other)
  Sender: FDA-Public Use
  Company Number: CH-ABBVIE-16P-151-1768612-00

PATIENT
  Sex: Male

DRUGS (4)
  1. MADOPAR DR [Concomitant]
     Indication: PRODUCT USED FOR UNKNOWN INDICATION
     Dates: end: 20161029
  2. DUODOPA [Suspect]
     Active Substance: CARBIDOPA\LEVODOPA
     Indication: PARKINSON^S DISEASE
     Dosage: MORNING DOSE: 6.0 ML?CONTINUOUS RATE: 3.2 ML/H?EXTRA DOSE: 1.5 ML?16H THERAPY
     Route: 065
     Dates: start: 20140617
  3. DUODOPA [Suspect]
     Active Substance: CARBIDOPA\LEVODOPA
     Dosage: MORNING DOSE: 6.0 ML?CONTINUOUS RATE: 2.9 ML/H?EXTRA DOSE: 1.5 ML
     Route: 065
  4. XADAGO [Concomitant]
     Active Substance: SAFINAMIDE
     Indication: PRODUCT USED FOR UNKNOWN INDICATION
     Dates: end: 20161028

REACTIONS (5)
  - Dyskinesia [Recovered/Resolved]
  - Weight decreased [Unknown]
  - Muscle spasms [Unknown]
  - Dyspnoea [Unknown]
  - Rapid eye movements sleep abnormal [Unknown]
